FAERS Safety Report 21219350 (Version 1)
Quarter: 2022Q3

REPORT INFORMATION
  Report Type: Report from Study
  Country: BR (occurrence: BR)
  Receive Date: 20220817
  Receipt Date: 20220817
  Transmission Date: 20221027
  Serious: Yes (Death, Life-Threatening, Other)
  Sender: FDA-Public Use
  Company Number: BR-SUN PHARMACEUTICAL INDUSTRIES LTD-2022R1-348129

PATIENT
  Age: 13 Year
  Sex: Female

DRUGS (3)
  1. EPINEPHRINE [Suspect]
     Active Substance: EPINEPHRINE
     Indication: Hypotension
     Dosage: UNK
     Route: 065
  2. NOREPINEPHRINE [Suspect]
     Active Substance: NOREPINEPHRINE
     Indication: Hypotension
     Dosage: UNK
     Route: 065
  3. VASOPRESSIN [Suspect]
     Active Substance: VASOPRESSIN
     Indication: Hypotension
     Dosage: UNK,HIGH-DOSE
     Route: 065

REACTIONS (5)
  - Cardio-respiratory arrest [Fatal]
  - Bundle branch block left [Unknown]
  - Heart rate increased [Unknown]
  - Electrocardiogram QRS complex prolonged [Unknown]
  - Ventricular tachycardia [Unknown]
